FAERS Safety Report 9885581 (Version 1)
Quarter: 2014Q1

REPORT INFORMATION
  Report Type: Spontaneous
  Country: US (occurrence: US)
  Receive Date: 20140210
  Receipt Date: 20140210
  Transmission Date: 20141002
  Serious: Yes (Other)
  Sender: FDA-Public Use
  Company Number: US-BAYER-2014-018248

PATIENT
  Sex: Female

DRUGS (1)
  1. RID 1-2-3 SYSTEM [Suspect]
     Indication: LICE INFESTATION
     Dosage: UNK
     Dates: start: 20140121

REACTIONS (2)
  - Asthma [None]
  - Intentional drug misuse [None]
